FAERS Safety Report 4478527-6 (Version None)
Quarter: 2004Q4

REPORT INFORMATION
  Report Type: 
  Country: None (occurrence: None)
  Receive Date: 20041013
  Receipt Date: 20040928
  Transmission Date: 20050328
  Serious: Yes (Hospitalization)
  Sender: FDA-Public Use
  Company Number: 8964

PATIENT
  Age: 53 Year
  Sex: Female

DRUGS (4)
  1. LEDERFOLINE [Suspect]
     Indication: RECTOSIGMOID CANCER
     Dosage: 325 MG DAILY IV
     Route: 042
     Dates: start: 20040825, end: 20040825
  2. OXALIPLATIN [Suspect]
     Indication: RECTOSIGMOID CANCER
     Dosage: 140 MG DAILY IV
     Route: 042
     Dates: start: 20040825, end: 20040825
  3. FLUOROURACIL [Suspect]
     Indication: RECTOSIGMOID CANCER
     Dosage: 650 MG DAILY IV
     Route: 042
     Dates: start: 20040825, end: 20040825
  4. ONDANSETRON HCL [Suspect]
     Indication: RECTOSIGMOID CANCER
     Dosage: 5 MG DAILY IV
     Route: 042
     Dates: start: 20040825, end: 20040825

REACTIONS (4)
  - CHILLS [None]
  - PRURITUS [None]
  - PYREXIA [None]
  - RASH ERYTHEMATOUS [None]
